FAERS Safety Report 8304902-5 (Version None)
Quarter: 2012Q2

REPORT INFORMATION
  Report Type: 
  Country: None (occurrence: None)
  Receive Date: 20120423
  Receipt Date: 20120416
  Transmission Date: 20120825
  Serious: Yes (Death, Other)
  Sender: FDA-Public Use
  Company Number: GB-GENZYME-CLOF-1001799

PATIENT
  Sex: Male
  Weight: 14.8 kg

DRUGS (23)
  1. FLUDARA [Suspect]
     Indication: STEM CELL TRANSPLANT
  2. TREOSULFAN [Suspect]
     Indication: ACUTE LYMPHOCYTIC LEUKAEMIA
     Dosage: UNK
     Route: 065
     Dates: start: 20110906, end: 20110912
  3. ACYCLOVIR [Concomitant]
     Indication: INFECTION
     Dosage: 1500 MG, UNK
     Route: 065
     Dates: start: 20110913, end: 20110921
  4. TREOSULFAN [Suspect]
     Indication: STEM CELL TRANSPLANT
  5. THIOTEPA [Suspect]
     Indication: STEM CELL TRANSPLANT
  6. AMIKACIN [Concomitant]
     Indication: FEBRILE NEUTROPENIA
  7. ZYVOX [Concomitant]
     Indication: INFECTION
     Dosage: 330 MG, UNK
     Route: 065
     Dates: start: 20110906, end: 20110921
  8. GRANOCYTE [Concomitant]
     Indication: INFECTION
     Dosage: 80 MG, UNK
     Route: 065
     Dates: start: 20110919, end: 20110921
  9. CYCLOSPORINE [Concomitant]
     Indication: PROPHYLAXIS AGAINST GRAFT VERSUS HOST DISEASE
     Dosage: 60 MG, UNK
     Route: 065
     Dates: start: 20110914, end: 20110921
  10. ANTI-THYMOCYTE GLOBULIN EQUINE NOS [Suspect]
     Indication: ACUTE LYMPHOCYTIC LEUKAEMIA
     Dosage: UNK
     Route: 065
     Dates: start: 20110906, end: 20110912
  11. AMIKACIN [Concomitant]
     Indication: INFECTION
     Dosage: 200 MG, UNK
     Route: 065
     Dates: start: 20110916, end: 20110921
  12. ACYCLOVIR [Concomitant]
     Indication: FEBRILE NEUTROPENIA
  13. TIGECYCLINE [Concomitant]
     Indication: INFECTION
     Dosage: 20 MG, UNK
     Route: 065
     Dates: start: 20110920, end: 20110921
  14. ZYVOX [Concomitant]
     Indication: FEBRILE NEUTROPENIA
  15. PREDNISOLONE [Concomitant]
     Indication: PROPHYLAXIS AGAINST GRAFT VERSUS HOST DISEASE
     Dosage: 18 MG, UNK
     Route: 065
     Dates: start: 20110913, end: 20110921
  16. CLOFARABINE [Suspect]
     Indication: ACUTE LYMPHOCYTIC LEUKAEMIA
     Dosage: 44 MG/M2, QD
     Route: 042
     Dates: start: 20110810, end: 20110814
  17. FLUDARA [Suspect]
     Indication: ACUTE LYMPHOCYTIC LEUKAEMIA
     Dosage: UNK
     Route: 065
     Dates: start: 20110906, end: 20110912
  18. ETOPOPHOS PRESERVATIVE FREE [Suspect]
     Indication: ACUTE LYMPHOCYTIC LEUKAEMIA
     Dosage: UNK
     Route: 065
     Dates: start: 20110810, end: 20110814
  19. CYCLOPHOSPHAMIDE [Suspect]
     Indication: ACUTE LYMPHOCYTIC LEUKAEMIA
     Dosage: UNK
     Route: 065
     Dates: start: 20110810, end: 20110814
  20. THIOTEPA [Suspect]
     Indication: ACUTE LYMPHOCYTIC LEUKAEMIA
     Dosage: UNK
     Route: 065
     Dates: start: 20110906, end: 20110912
  21. GRANOCYTE [Concomitant]
     Indication: FEBRILE NEUTROPENIA
  22. ANTI-THYMOCYTE GLOBULIN EQUINE NOS [Suspect]
     Indication: STEM CELL TRANSPLANT
  23. TIGECYCLINE [Concomitant]
     Indication: FEBRILE NEUTROPENIA

REACTIONS (3)
  - SEPSIS [None]
  - PERITONITIS BACTERIAL [None]
  - NEUTROPENIA [None]
